FAERS Safety Report 19290079 (Version 1)
Quarter: 2021Q2

REPORT INFORMATION
  Report Type: Spontaneous
  Country: US (occurrence: US)
  Receive Date: 20210521
  Receipt Date: 20210521
  Transmission Date: 20210717
  Serious: No
  Sender: FDA-Public Use
  Company Number: US-RADIUS HEALTH INC.-2021US000211

PATIENT
  Sex: Female

DRUGS (3)
  1. TYMLOS [Suspect]
     Active Substance: ABALOPARATIDE
     Dosage: 80 MCG, QOD
     Route: 058
     Dates: start: 20210113
  2. TYMLOS [Suspect]
     Active Substance: ABALOPARATIDE
     Indication: PRODUCT USED FOR UNKNOWN INDICATION
     Dosage: 80 MCG, QD
     Route: 058
     Dates: start: 20201221, end: 20210105
  3. AIMOVIG [Concomitant]
     Active Substance: ERENUMAB-AOOE
     Indication: PRODUCT USED FOR UNKNOWN INDICATION
     Dosage: MONTHLY

REACTIONS (2)
  - Migraine [Unknown]
  - Off label use [Unknown]
